FAERS Safety Report 4587300-X (Version None)
Quarter: 2005Q1

REPORT INFORMATION
  Report Type: 
  Country: None (occurrence: None)
  Receive Date: 20050215
  Receipt Date: 20050202
  Transmission Date: 20050727
  Serious: Yes (Life-Threatening)
  Sender: FDA-Public Use
  Company Number: AWBNIASPAND2004-31

PATIENT
  Age: 51 Year
  Sex: Female

DRUGS (2)
  1. NIASPAN [Suspect]
     Indication: DYSLIPIDAEMIA
     Dosage: 1000 MG QD PO
     Route: 048
     Dates: start: 20040601, end: 20040624
  2. LEVOTHYROXINE SODIUM [Concomitant]

REACTIONS (3)
  - DIZZINESS [None]
  - FLUSHING [None]
  - PRURITUS GENERALISED [None]
